FAERS Safety Report 5273368-4 (Version None)
Quarter: 2007Q1

REPORT INFORMATION
  Report Type: 
  Country: None (occurrence: None)
  Receive Date: 20070322
  Receipt Date: 20070312
  Transmission Date: 20070707
  Serious: Yes (Hospitalization)
  Sender: FDA-Public Use
  Company Number: GB-ELI_LILLY_AND_COMPANY-GB200605000833

PATIENT
  Age: 25 Year
  Sex: Female

DRUGS (2)
  1. CYMBALTA [Suspect]
     Indication: DEPRESSION
     Dosage: 60 MG, DAILY (1/D)
     Route: 048
     Dates: start: 20060201, end: 20060701
  2. MIRTAZAPINE [Concomitant]
     Indication: DEPRESSION
     Dosage: 45 MG, UNK
     Route: 065
     Dates: start: 20051001, end: 20060201

REACTIONS (2)
  - DRUG EXPOSURE DURING PREGNANCY [None]
  - OLIGOHYDRAMNIOS [None]
